FAERS Safety Report 10756656 (Version 1)
Quarter: 2015Q1

REPORT INFORMATION
  Report Type: Report from Study
  Country: BR (occurrence: BR)
  Receive Date: 20150202
  Receipt Date: 20150202
  Transmission Date: 20150721
  Serious: Yes (Hospitalization, Other)
  Sender: FDA-Public Use
  Company Number: PHHY2015BR012057

PATIENT
  Age: 78 Year
  Sex: Male

DRUGS (1)
  1. EXELON PATCH [Suspect]
     Active Substance: RIVASTIGMINE
     Indication: DEMENTIA ALZHEIMER^S TYPE
     Dosage: 4.6 MG, QD (EVERY 24 HOURS)
     Route: 062
     Dates: end: 201411

REACTIONS (6)
  - Anaemia [Recovering/Resolving]
  - Hypertension [Recovering/Resolving]
  - Weight decreased [Unknown]
  - Renal failure [Unknown]
  - Malaise [Unknown]
  - Dysentery [Unknown]

NARRATIVE: CASE EVENT DATE: 201411
